FAERS Safety Report 20736158 (Version 1)
Quarter: 2022Q2

REPORT INFORMATION
  Report Type: Report from Study
  Country: DE (occurrence: DE)
  Receive Date: 20220421
  Receipt Date: 20220421
  Transmission Date: 20220721
  Serious: Yes (Other)
  Sender: FDA-Public Use
  Company Number: DE-GW PHARMA-202202DEGW00748

PATIENT

DRUGS (2)
  1. CANNABIDIOL [Suspect]
     Active Substance: CANNABIDIOL
     Indication: Tuberous sclerosis complex
     Dosage: UNK
     Route: 048
  2. CANNABIDIOL [Suspect]
     Active Substance: CANNABIDIOL
     Dosage: 1000 MILLIGRAM, QD
     Route: 048
     Dates: start: 20190630

REACTIONS (1)
  - Seizure [Unknown]

NARRATIVE: CASE EVENT DATE: 20190718
